FAERS Safety Report 9110579 (Version 1)
Quarter: 2013Q1

REPORT INFORMATION
  Report Type: Spontaneous
  Country: US (occurrence: US)
  Receive Date: 20130219
  Receipt Date: 20130219
  Transmission Date: 20140127
  Serious: No
  Sender: FDA-Public Use
  Company Number: US-BRISTOL-MYERS SQUIBB COMPANY-16614174

PATIENT
  Age: 44 Year
  Sex: Female
  Weight: 139 kg

DRUGS (1)
  1. ORENCIA [Suspect]
     Indication: RHEUMATOID ARTHRITIS
     Dosage: LAST INF: 15MAY. NO OF INF: 2.
     Route: 042
     Dates: start: 20120501

REACTIONS (1)
  - Fatigue [Recovered/Resolved]
